FAERS Safety Report 10805042 (Version 1)
Quarter: 2015Q1

REPORT INFORMATION
  Report Type: Report from Study
  Country: US (occurrence: US)
  Receive Date: 20150217
  Receipt Date: 20150217
  Transmission Date: 20150721
  Serious: No
  Sender: FDA-Public Use
  Company Number: US-ABBVIE-14K-163-1249352-00

PATIENT
  Age: 40 Year
  Sex: Male

DRUGS (3)
  1. HUMIRA [Suspect]
     Active Substance: ADALIMUMAB
     Indication: ARTHRITIS
     Dates: start: 20140612
  2. HUMIRA [Suspect]
     Active Substance: ADALIMUMAB
     Indication: ANKYLOSING SPONDYLITIS
     Dates: start: 201404
  3. HUMIRA [Suspect]
     Active Substance: ADALIMUMAB
     Indication: INFLAMMATORY BOWEL DISEASE

REACTIONS (5)
  - Pruritus generalised [Not Recovered/Not Resolved]
  - Dry skin [Unknown]
  - Dyspepsia [Unknown]
  - Sleep disorder [Unknown]
  - Rash papular [Not Recovered/Not Resolved]

NARRATIVE: CASE EVENT DATE: 2014
